FAERS Safety Report 18947686 (Version 1)
Quarter: 2021Q1

REPORT INFORMATION
  Report Type: Spontaneous
  Country: FR (occurrence: FR)
  Receive Date: 20210226
  Receipt Date: 20210226
  Transmission Date: 20210420
  Serious: Yes (Other)
  Sender: FDA-Public Use
  Company Number: FR-BAYER-2021-078099

PATIENT
  Sex: Female

DRUGS (1)
  1. ULTRAVIST [Suspect]
     Active Substance: IOPROMIDE
     Dosage: 100 ML, ONCE
     Dates: start: 201910, end: 201910

REACTIONS (3)
  - Angioedema [None]
  - Contrast media allergy [None]
  - Product label issue [None]

NARRATIVE: CASE EVENT DATE: 201910
